FAERS Safety Report 8020961-1 (Version None)
Quarter: 2011Q4

REPORT INFORMATION
  Report Type: 
  Country: None (occurrence: None)
  Receive Date: 20111229
  Receipt Date: 20111229
  Transmission Date: 20120403
  Serious: Yes (Death, Hospitalization)
  Sender: FDA-Public Use
  Company Number: None

PATIENT
  Sex: Female
  Weight: 68 kg

DRUGS (6)
  1. HYDROCHLOROTHIAZIDE [Concomitant]
  2. TRAZODONE HCL [Concomitant]
  3. ATIVAN [Concomitant]
  4. CISPLATIN [Suspect]
     Dosage: 120 MG
     Dates: end: 20110118
  5. TAXOTERE [Suspect]
     Dosage: 120 MG
     Dates: end: 20110118
  6. LOVASTATIN [Concomitant]

REACTIONS (16)
  - COUGH [None]
  - LUNG INFILTRATION [None]
  - AGITATION [None]
  - BLOOD UREA INCREASED [None]
  - PNEUMONIA [None]
  - WHITE BLOOD CELL COUNT DECREASED [None]
  - HYPOTENSION [None]
  - RESPIRATORY ARREST [None]
  - HAEMATEMESIS [None]
  - CARDIAC ARREST [None]
  - DEHYDRATION [None]
  - UNRESPONSIVE TO STIMULI [None]
  - INCREASED UPPER AIRWAY SECRETION [None]
  - BODY TEMPERATURE INCREASED [None]
  - OXYGEN SATURATION DECREASED [None]
  - LOSS OF CONSCIOUSNESS [None]
